FAERS Safety Report 7353442-9 (Version None)
Quarter: 2011Q1

REPORT INFORMATION
  Report Type: 
  Country: None (occurrence: None)
  Receive Date: 20110310
  Receipt Date: 20110310
  Transmission Date: 20110831
  Serious: No
  Sender: FDA-Public Use
  Company Number: None

PATIENT
  Sex: Female
  Weight: 111.5849 kg

DRUGS (1)
  1. DESOGESTREL ETHINYL ESTRADIOL 0.15-30 MG-MCG [Suspect]
     Indication: CONTRACEPTION
     Dosage: ONE TAB DAILY

REACTIONS (1)
  - HEADACHE [None]
